FAERS Safety Report 10424315 (Version 1)
Quarter: 2014Q3

REPORT INFORMATION
  Report Type: Spontaneous
  Country: US (occurrence: US)
  Receive Date: 20140902
  Receipt Date: 20140902
  Transmission Date: 20150326
  Serious: Yes (Hospitalization, Other)
  Sender: FDA-Public Use
  Company Number: US-TEVA-505089USA

PATIENT
  Age: 59 Year
  Sex: Female

DRUGS (18)
  1. ENERCEL PLUS IM [Suspect]
     Active Substance: HOMEOPATHICS
     Indication: AMYOTROPHIC LATERAL SCLEROSIS
     Dosage: 0.25-0.5ML DAILY TO EACH ACUPUNCTURE POINT ON MONDAY TO FRIDAY EACH WEEK
     Route: 030
  2. SERTRALINE [Concomitant]
     Active Substance: SERTRALINE HYDROCHLORIDE
     Route: 065
  3. SENNOSIDES [Concomitant]
     Active Substance: SENNOSIDES
     Indication: CONSTIPATION
     Route: 065
  4. ATENOLOL. [Concomitant]
     Active Substance: ATENOLOL
     Route: 065
  5. GABAPENTIN. [Concomitant]
     Active Substance: GABAPENTIN
     Route: 065
  6. OMEPRAZOLE. [Concomitant]
     Active Substance: OMEPRAZOLE
     Route: 065
  7. HYDROCHLOROTHIAZIDE. [Suspect]
     Active Substance: HYDROCHLOROTHIAZIDE
     Route: 065
  8. ENERCEL MAX [Suspect]
     Active Substance: HOMEOPATHICS
     Indication: AMYOTROPHIC LATERAL SCLEROSIS
     Dosage: 20 DROPS TWICE DAILY ON MONDAY TO FRIDAY EACH WEEK
     Route: 060
  9. ENERCEL MAX [Suspect]
     Active Substance: HOMEOPATHICS
     Indication: AMYOTROPHIC LATERAL SCLEROSIS
     Dosage: 10 DROPS IN 16OZ OF WATER TWICE DAILY ON MONDAY TO FRIDAY EACH WEEK
     Route: 048
  10. ESTRADIOL. [Concomitant]
     Active Substance: ESTRADIOL
     Route: 065
  11. ENERCEL PLUS IM [Suspect]
     Active Substance: HOMEOPATHICS
     Indication: AMYOTROPHIC LATERAL SCLEROSIS
     Dosage: 3ML ON MONDAY TO FRIDAY EACH WEEK
     Route: 030
  12. RILUTEK [Suspect]
     Active Substance: RILUZOLE
     Route: 065
  13. COLACE [Concomitant]
     Active Substance: DOCUSATE SODIUM
     Route: 065
  14. POTASSIUM CHLORIDE. [Concomitant]
     Active Substance: POTASSIUM CHLORIDE
     Route: 065
  15. LORAZEPAM. [Concomitant]
     Active Substance: LORAZEPAM
     Dosage: AS REQUIRED
     Route: 065
  16. OXYCODONE [Concomitant]
     Active Substance: OXYCODONE
     Route: 065
  17. MAGNESIUM SULFATE [Concomitant]
     Active Substance: MAGNESIUM SULFATE
     Indication: CONSTIPATION
     Dosage: INTERMITTENT USE
     Route: 048
  18. LASIX [Suspect]
     Active Substance: FUROSEMIDE
     Route: 065

REACTIONS (6)
  - Fatigue [Recovering/Resolving]
  - Dizziness [Recovering/Resolving]
  - Pyrexia [Recovering/Resolving]
  - Oedema peripheral [Recovering/Resolving]
  - Myalgia [Recovering/Resolving]
  - Blood potassium decreased [Recovered/Resolved]
